FAERS Safety Report 4587379-5 (Version None)
Quarter: 2005Q1

REPORT INFORMATION
  Report Type: 
  Country: None (occurrence: None)
  Receive Date: 20050216
  Receipt Date: 20050203
  Transmission Date: 20050727
  Serious: Yes (Hospitalization)
  Sender: FDA-Public Use
  Company Number: US-JNJFOC-20041007696

PATIENT
  Sex: Female
  Weight: 94.35 kg

DRUGS (17)
  1. REMICADE [Suspect]
     Route: 042
  2. REMICADE [Suspect]
     Route: 042
  3. REMICADE [Suspect]
     Route: 042
  4. REMICADE [Suspect]
     Route: 042
  5. REMICADE [Suspect]
     Indication: RHEUMATOID ARTHRITIS
     Route: 042
  6. METHOTREXATE [Concomitant]
  7. METHOTREXATE [Concomitant]
  8. METHOTREXATE [Concomitant]
  9. METHOTREXATE [Concomitant]
  10. METHOTREXATE [Concomitant]
  11. METHOTREXATE [Concomitant]
     Indication: RHEUMATOID ARTHRITIS
  12. PREVACID [Concomitant]
  13. ESTRADIOL [Concomitant]
     Indication: HORMONE REPLACEMENT THERAPY
  14. INDOCIN SR [Concomitant]
  15. ULTRACET [Concomitant]
  16. PLAQUENIL [Concomitant]
  17. PLAQUENIL [Concomitant]

REACTIONS (6)
  - ATRIAL FIBRILLATION [None]
  - HAEMATOCRIT DECREASED [None]
  - HAEMOGLOBIN DECREASED [None]
  - PLATELET COUNT INCREASED [None]
  - RED BLOOD CELL SEDIMENTATION RATE INCREASED [None]
  - VIRAL PERICARDITIS [None]
